FAERS Safety Report 15133369 (Version 2)
Quarter: 2019Q2

REPORT INFORMATION
  Report Type: Spontaneous
  Country: FR (occurrence: FR)
  Receive Date: 20180712
  Receipt Date: 20190524
  Transmission Date: 20190711
  Serious: Yes (Life-Threatening)
  Sender: FDA-Public Use
  Company Number: FR-CLINIGEN GROUP PLC/ CLINIGEN HEALTHCARE LTD-FR-CLGN-18-0012163

PATIENT
  Age: 54 Year
  Sex: Male
  Weight: 114 kg

DRUGS (9)
  1. BENEMIDE [Suspect]
     Active Substance: PROBENECID
     Indication: NEPHROPROTECTIVE THERAPY
     Route: 048
     Dates: start: 20180419, end: 20180503
  2. CYTOTECT CP [Suspect]
     Active Substance: HUMAN CYTOMEGALOVIRUS IMMUNE GLOBULIN
     Route: 042
     Dates: start: 20180418, end: 20180423
  3. LEDERFOLINE [Concomitant]
     Active Substance: LEUCOVORIN CALCIUM
     Indication: PRODUCT USED FOR UNKNOWN INDICATION
     Route: 048
  4. BACTRIM [Concomitant]
     Active Substance: SULFAMETHOXAZOLE\TRIMETHOPRIM
     Indication: PRODUCT USED FOR UNKNOWN INDICATION
     Route: 048
  5. CYTOTECT CP [Suspect]
     Active Substance: HUMAN CYTOMEGALOVIRUS IMMUNE GLOBULIN
     Indication: CYTOMEGALOVIRUS INFECTION
     Route: 042
     Dates: start: 20180406, end: 20180414
  6. ROVAMYCINE [Concomitant]
     Active Substance: SPIRAMYCIN
     Indication: PRODUCT USED FOR UNKNOWN INDICATION
     Route: 048
  7. PARACETAMOL [Concomitant]
     Active Substance: ACETAMINOPHEN
     Indication: PRODUCT USED FOR UNKNOWN INDICATION
     Route: 048
  8. CIDOFOVIR ANHYDRE [Suspect]
     Active Substance: CIDOFOVIR
     Indication: CYTOMEGALOVIRUS INFECTION
     Route: 042
     Dates: start: 20180419, end: 20180503
  9. FOSCAVIR [Suspect]
     Active Substance: FOSCARNET SODIUM
     Indication: CYTOMEGALOVIRUS INFECTION
     Route: 042
     Dates: start: 20180319, end: 20180417

REACTIONS (3)
  - Off label use [Unknown]
  - Haemolytic anaemia [Recovered/Resolved with Sequelae]
  - Bone marrow failure [Recovered/Resolved]

NARRATIVE: CASE EVENT DATE: 20180423
